APPROVED DRUG PRODUCT: FLUOXETINE HYDROCHLORIDE
Active Ingredient: FLUOXETINE HYDROCHLORIDE
Strength: EQ 40MG BASE
Dosage Form/Route: TABLET;ORAL
Application: A075865 | Product #003
Applicant: IVAX PHARMACEUTICALS INC SUB TEVA PHARMACEUTICALS USA
Approved: Aug 30, 2004 | RLD: No | RS: No | Type: DISCN